FAERS Safety Report 10892533 (Version 4)
Quarter: 2015Q3

REPORT INFORMATION
  Report Type: Report from Study
  Country: IE (occurrence: IE)
  Receive Date: 20150306
  Receipt Date: 20150710
  Transmission Date: 20151125
  Serious: Yes (Hospitalization)
  Sender: FDA-Public Use
  Company Number: PHHO2015IE003259

PATIENT
  Age: 44 Year
  Sex: Female
  Weight: 59.7 kg

DRUGS (3)
  1. LDK378 [Suspect]
     Active Substance: CERITINIB
     Indication: NON-SMALL CELL LUNG CANCER
     Dosage: 750 MG, UNK
     Route: 048
     Dates: start: 20150130, end: 20150301
  2. VALOID//CYCLIZINE HYDROCHLORIDE [Concomitant]
     Indication: VOMITING
     Dosage: 50 MG, TID PRN
     Route: 065
  3. LDK378 [Suspect]
     Active Substance: CERITINIB
     Dosage: UNK (REDUCED DOSE)
     Route: 048
     Dates: start: 20150309

REACTIONS (3)
  - Pericarditis [Recovered/Resolved]
  - Lower respiratory tract infection [Recovered/Resolved]
  - Lower respiratory tract infection [Recovered/Resolved]

NARRATIVE: CASE EVENT DATE: 20150224
